FAERS Safety Report 8882257 (Version 2)
Quarter: 2013Q1

REPORT INFORMATION
  Report Type: Spontaneous
  Country: FR (occurrence: FR)
  Receive Date: 20121102
  Receipt Date: 20130208
  Transmission Date: 20140127
  Serious: Yes (Other)
  Sender: FDA-Public Use
  Company Number: FR-ABBOTT-12P-056-1001874-00

PATIENT
  Sex: Male

DRUGS (4)
  1. RITONAVIR [Suspect]
     Indication: HIV INFECTION
     Route: 048
  2. TRUVADA [Suspect]
     Indication: HIV INFECTION
     Route: 048
     Dates: start: 2010
  3. DARUNAVIR [Suspect]
     Indication: HIV INFECTION
     Route: 048
  4. BILTRICIDE [Concomitant]
     Indication: PRODUCT USED FOR UNKNOWN INDICATION

REACTIONS (3)
  - Liver disorder [Unknown]
  - Hepatitis B DNA assay positive [Unknown]
  - Drug ineffective [Unknown]
